FAERS Safety Report 9628052 (Version 1)
Quarter: 2013Q4

REPORT INFORMATION
  Report Type: Report from Study
  Country: ZA (occurrence: ZA)
  Receive Date: 20131016
  Receipt Date: 20131016
  Transmission Date: 20140711
  Serious: Yes (Death, Hospitalization)
  Sender: FDA-Public Use
  Company Number: ZA-ROCHE-1289893

PATIENT
  Age: 61 Year
  Sex: Female

DRUGS (3)
  1. MIRCERA [Suspect]
     Indication: NEPHROGENIC ANAEMIA
     Route: 058
     Dates: start: 20120716
  2. MIRCERA [Suspect]
     Route: 058
     Dates: start: 20130128
  3. MIRCERA [Suspect]
     Route: 058
     Dates: start: 20130218

REACTIONS (1)
  - Death [Fatal]
